FAERS Safety Report 25880557 (Version 2)
Quarter: 2025Q4

REPORT INFORMATION
  Report Type: Spontaneous
  Country: JP (occurrence: JP)
  Receive Date: 20251004
  Receipt Date: 20251030
  Transmission Date: 20260118
  Serious: Yes (Death)
  Sender: MERCK SHARP & DOHME LLC
  Company Number: JP-009507513-2335586

PATIENT
  Age: 50 Year
  Sex: Male

DRUGS (1)
  1. KEYTRUDA [Suspect]
     Active Substance: PEMBROLIZUMAB
     Indication: Non-small cell lung cancer
     Dosage: 200 MG, FREQUENCY NOT REPORTED
     Route: 041
     Dates: start: 20241029, end: 20250204

REACTIONS (3)
  - Cholangitis [Fatal]
  - Immune-mediated hepatitis [Fatal]
  - Rash maculo-papular [Unknown]

NARRATIVE: CASE EVENT DATE: 20250401
